FAERS Safety Report 9522075 (Version 1)
Quarter: 2013Q3

REPORT INFORMATION
  Report Type: Spontaneous
  Country: US (occurrence: US)
  Receive Date: 20130913
  Receipt Date: 20130913
  Transmission Date: 20140515
  Serious: Yes (Other)
  Sender: FDA-Public Use
  Company Number: US-PFIZER INC-2013264066

PATIENT
  Sex: 0

DRUGS (1)
  1. LYRICA [Suspect]
     Dosage: 75 MG, 2X/DAY (BID)

REACTIONS (4)
  - Short-bowel syndrome [Unknown]
  - Neuropathy peripheral [Unknown]
  - Nerve injury [Unknown]
  - Malabsorption [Unknown]
